FAERS Safety Report 7399413-8 (Version None)
Quarter: 2011Q2

REPORT INFORMATION
  Report Type: 
  Country: None (occurrence: None)
  Receive Date: 20110407
  Receipt Date: 20110325
  Transmission Date: 20111010
  Serious: Yes (Other)
  Sender: FDA-Public Use
  Company Number: PHEH2009US03012

PATIENT
  Sex: Male

DRUGS (3)
  1. EXJADE [Suspect]
     Indication: HEREDITARY HAEMOLYTIC ANAEMIA
     Dosage: 375 MG, QD
     Route: 048
     Dates: start: 20060901
  2. EXJADE [Suspect]
     Indication: IRON OVERLOAD
     Dosage: 500 MG, UNK
     Route: 048
     Dates: start: 20060908, end: 20090801
  3. FOLIC ACID [Concomitant]
     Dosage: UNK
     Dates: start: 20040101

REACTIONS (8)
  - ABDOMINAL DISTENSION [None]
  - ABDOMINAL PAIN [None]
  - BACK PAIN [None]
  - VOMITING [None]
  - MIDDLE EAR EFFUSION [None]
  - IMMUNOSUPPRESSION [None]
  - DEAFNESS [None]
  - RESPIRATORY SYNCYTIAL VIRUS INFECTION [None]
